FAERS Safety Report 9291598 (Version 1)
Quarter: 2013Q2

REPORT INFORMATION
  Report Type: Spontaneous
  Country: NO (occurrence: NO)
  Receive Date: 20130515
  Receipt Date: 20130515
  Transmission Date: 20140414
  Serious: Yes (Hospitalization)
  Sender: FDA-Public Use
  Company Number: NO-GLAXOSMITHKLINE-B0891638A

PATIENT
  Age: 47 Year
  Sex: Male

DRUGS (3)
  1. REVOLADE [Suspect]
     Indication: THROMBOCYTOPENIC PURPURA
     Dosage: 75MG PER DAY
     Route: 065
     Dates: start: 20121217, end: 20121224
  2. HUMAN IMMUNOGLOBULINS [Concomitant]
     Indication: THROMBOCYTOPENIC PURPURA
     Route: 042
     Dates: start: 201212
  3. PREDNISOLONE [Concomitant]
     Indication: THROMBOCYTOPENIC PURPURA
     Dosage: 60MG PER DAY
     Route: 065
     Dates: start: 20121212

REACTIONS (1)
  - Thrombosis [Recovered/Resolved]
